FAERS Safety Report 7308109-X (Version None)
Quarter: 2011Q1

REPORT INFORMATION
  Report Type: 
  Country: None (occurrence: None)
  Receive Date: 20110223
  Receipt Date: 20110215
  Transmission Date: 20110831
  Serious: Yes (Death, Other)
  Sender: FDA-Public Use
  Company Number: JP-ROCHE-755105

PATIENT
  Age: 73 Year
  Sex: Female

DRUGS (32)
  1. BAKTAR [Concomitant]
     Route: 048
  2. FUNGIZONE [Concomitant]
     Route: 048
  3. TOCILIZUMAB [Suspect]
     Route: 041
     Dates: start: 20110131, end: 20110131
  4. TOCILIZUMAB [Suspect]
     Route: 041
     Dates: start: 20110124, end: 20110124
  5. TOCILIZUMAB [Suspect]
     Route: 041
     Dates: start: 20101021, end: 20110117
  6. PREDNISOLONE [Concomitant]
     Route: 048
     Dates: end: 20100520
  7. LASIX [Concomitant]
     Route: 048
     Dates: start: 20100906, end: 20100917
  8. LASIX [Concomitant]
     Route: 048
     Dates: start: 20101216
  9. BENET [Concomitant]
     Route: 048
  10. ZYLORIC [Concomitant]
     Dosage: FORM: PERORAL AGENT
     Route: 048
  11. TOCILIZUMAB [Suspect]
     Route: 041
     Dates: start: 20091216, end: 20100924
  12. LASIX [Concomitant]
     Route: 048
     Dates: start: 20100806, end: 20100825
  13. LASIX [Concomitant]
     Route: 048
     Dates: start: 20100918, end: 20100924
  14. LASIX [Concomitant]
     Route: 048
     Dates: start: 20100925, end: 20101124
  15. OMEPRAL [Concomitant]
     Dosage: FORM: ENTERIC CAOTING DRUG
     Route: 048
  16. PAXIL [Concomitant]
     Dosage: PERORAL AGENT
     Route: 048
     Dates: start: 20100521
  17. TOCILIZUMAB [Suspect]
     Route: 041
     Dates: start: 20110207, end: 20110207
  18. LASIX [Concomitant]
     Dosage: FORM: PERORAL AGENT
     Route: 048
     Dates: end: 20100805
  19. LASIX [Concomitant]
     Route: 048
     Dates: start: 20101125, end: 20101208
  20. SODIUM BICARBONATE [Concomitant]
     Dosage: FORM: PERORAL AGENT
     Route: 048
  21. PREDNISOLONE [Concomitant]
     Route: 048
     Dates: start: 20100521, end: 20100730
  22. LASIX [Concomitant]
     Route: 048
     Dates: start: 20100826, end: 20100905
  23. DIFLUCAN [Concomitant]
     Route: 048
     Dates: start: 20100123
  24. FUROSEMIDE [Concomitant]
     Route: 048
     Dates: start: 20100521
  25. PREDNISOLONE [Concomitant]
     Dosage: FORM: PERORAL AGENT
     Route: 048
  26. LASIX [Concomitant]
     Route: 048
     Dates: start: 20101209, end: 20101215
  27. TOCILIZUMAB [Suspect]
     Indication: CASTLEMAN'S DISEASE
     Route: 041
     Dates: start: 20110214, end: 20110214
  28. ALKERAN [Concomitant]
     Route: 048
  29. PREDNISOLONE [Concomitant]
     Route: 048
     Dates: start: 20100731
  30. ANPLAG [Concomitant]
     Dosage: FORM: PERORAL AGENT
     Route: 048
  31. NORMONAL [Concomitant]
     Route: 048
  32. TAKEPRON [Concomitant]
     Dosage: PERORAL AGENT
     Route: 048
     Dates: start: 20100715

REACTIONS (4)
  - TIBIA FRACTURE [None]
  - PNEUMONIA ASPIRATION [None]
  - HAEMORRHAGE [None]
  - URINARY TRACT INFECTION [None]
